FAERS Safety Report 16590764 (Version 1)
Quarter: 2019Q3

REPORT INFORMATION
  Report Type: Spontaneous
  Country: US (occurrence: US)
  Receive Date: 20190718
  Receipt Date: 20190718
  Transmission Date: 20191004
  Serious: No
  Sender: FDA-Public Use
  Company Number: US-TEVA-2019-US-1078804

PATIENT
  Sex: Male

DRUGS (2)
  1. NUVIGIL [Suspect]
     Active Substance: ARMODAFINIL
     Indication: SLEEP APNOEA SYNDROME
  2. NUVIGIL [Suspect]
     Active Substance: ARMODAFINIL
     Indication: INSOMNIA
     Route: 065

REACTIONS (3)
  - Drug ineffective [Unknown]
  - Insomnia [Unknown]
  - Nasopharyngitis [Unknown]
